FAERS Safety Report 26209480 (Version 1)
Quarter: 2025Q4

REPORT INFORMATION
  Report Type: Spontaneous
  Country: US (occurrence: US)
  Receive Date: 20251229
  Receipt Date: 20251229
  Transmission Date: 20260118
  Serious: Yes (Death, Hospitalization)
  Sender: AMGEN
  Company Number: US-AMGEN-USASP2025250425

PATIENT
  Age: 43 Year
  Sex: Male

DRUGS (1)
  1. PREDNISONE [Suspect]
     Active Substance: PREDNISONE
     Indication: Pulmonary sarcoidosis
     Dosage: 50 MILLIGRAM, QD
     Route: 065

REACTIONS (11)
  - Death [Fatal]
  - Pleural effusion [Unknown]
  - Pulmonary sarcoidosis [Unknown]
  - Disseminated coccidioidomycosis [Unknown]
  - Blood triglycerides increased [Unknown]
  - Bicytopenia [Unknown]
  - Anaemia [Unknown]
  - Thrombocytopenia [Unknown]
  - Shock [Unknown]
  - Hyperferritinaemia [Unknown]
  - Splenomegaly [Unknown]
